FAERS Safety Report 19615439 (Version 4)
Quarter: 2021Q3

REPORT INFORMATION
  Report Type: Spontaneous
  Country: PT (occurrence: PT)
  Receive Date: 20210727
  Receipt Date: 20210819
  Transmission Date: 20211014
  Serious: Yes (Hospitalization, Other)
  Sender: FDA-Public Use
  Company Number: PT-MYLANLABS-2021M1005230

PATIENT
  Age: 53 Year
  Sex: Female

DRUGS (3)
  1. LITHIUM. [Interacting]
     Active Substance: LITHIUM
     Indication: BIPOLAR DISORDER
     Dosage: 400 MILLIGRAM, BID
  2. IBUPROFEN. [Suspect]
     Active Substance: IBUPROFEN
     Indication: ARTHRALGIA
     Dosage: 600 MILLIGRAM, Q8H
  3. IBUPROFEN. [Interacting]
     Active Substance: IBUPROFEN
     Dosage: 1800 MILLIGRAM, QD (1800 MILLIGRAM DAILY; 8?8HOURS)
     Route: 048

REACTIONS (9)
  - Disorientation [Unknown]
  - Dyskinesia [Unknown]
  - Antipsychotic drug level above therapeutic [Recovered/Resolved]
  - Toxicity to various agents [Unknown]
  - Labelled drug-drug interaction medication error [Unknown]
  - Dysarthria [Unknown]
  - Gait disturbance [Unknown]
  - Drug interaction [Recovered/Resolved]
  - Consciousness fluctuating [Unknown]
